FAERS Safety Report 5685168-1 (Version None)
Quarter: 2008Q1

REPORT INFORMATION
  Report Type: 
  Country: None (occurrence: None)
  Receive Date: 20080328
  Receipt Date: 20080320
  Transmission Date: 20080703
  Serious: Yes (Death)
  Sender: FDA-Public Use
  Company Number: GR-GENENTECH-258277

PATIENT
  Age: 74 Year
  Sex: Female

DRUGS (7)
  1. MABTHERA [Suspect]
     Indication: ANAEMIA HAEMOLYTIC AUTOIMMUNE
     Dosage: 375 MG/M2, UNK
  2. MABTHERA [Suspect]
     Indication: APLASIA PURE RED CELL
  3. NEUPOGEN [Concomitant]
     Indication: GRANULOCYTOPENIA
  4. PREDNISONE TAB [Concomitant]
     Indication: DRUG USE FOR UNKNOWN INDICATION
  5. IMMUNE GLOBULIN (HUMAN) [Concomitant]
     Indication: DRUG USE FOR UNKNOWN INDICATION
     Dosage: 0.4 G/KG, UNK
     Route: 042
  6. CYCLOPHOSPHAMIDE [Concomitant]
     Indication: DRUG USE FOR UNKNOWN INDICATION
     Dosage: 100 MG, UNK
  7. RED BLOOD CELLS [Concomitant]
     Indication: DRUG USE FOR UNKNOWN INDICATION
     Dosage: 2 UNIT, UNK

REACTIONS (3)
  - APLASIA PURE RED CELL [None]
  - CORYNEBACTERIUM SEPSIS [None]
  - SEPTIC SHOCK [None]
